FAERS Safety Report 9318184 (Version 1)
Quarter: 2013Q2

REPORT INFORMATION
  Report Type: Spontaneous
  Country: US (occurrence: None)
  Receive Date: 20130529
  Receipt Date: 20130529
  Transmission Date: 20140414
  Serious: No
  Sender: FDA-Public Use
  Company Number: None

PATIENT
  Age: 47 Year
  Sex: Female

DRUGS (1)
  1. METFORMIN [Suspect]
     Indication: DIABETES MELLITUS
     Dosage: 1 TAB } 3 TIMES DAILY
     Route: 048
     Dates: start: 20110617, end: 20120802

REACTIONS (2)
  - Nausea [None]
  - Diarrhoea [None]
